FAERS Safety Report 19464446 (Version 2)
Quarter: 2021Q2

REPORT INFORMATION
  Report Type: Other
  Country: US (occurrence: US)
  Receive Date: 20210626
  Receipt Date: 20210626
  Transmission Date: 20210717
  Serious: No
  Sender: FDA-Public Use
  Company Number: US-NEUROCRINE BIOSCIENCES INC.-2021NBI03067

PATIENT

DRUGS (1)
  1. INGREZZA [Suspect]
     Active Substance: VALBENAZINE
     Indication: TARDIVE DYSKINESIA
     Dosage: INGREZZA INITIAL PACK (UNKNOWN DOSE)
     Route: 048
     Dates: start: 20210607, end: 202106

REACTIONS (1)
  - Illness [Recovered/Resolved]

NARRATIVE: CASE EVENT DATE: 20210608
